FAERS Safety Report 7609243-7 (Version None)
Quarter: 2011Q3

REPORT INFORMATION
  Report Type: 
  Country: None (occurrence: None)
  Receive Date: 20110713
  Receipt Date: 20110713
  Transmission Date: 20111222
  Serious: Yes (Other)
  Sender: FDA-Public Use
  Company Number: None

PATIENT
  Age: 5 Year
  Sex: Male
  Weight: 24.0406 kg

DRUGS (2)
  1. SINGULAIR [Suspect]
     Indication: ASTHMA
     Dosage: 4 MG DAILY PO
     Route: 048
     Dates: start: 20060910, end: 20110606
  2. SINGULAIR [Suspect]
     Indication: MULTIPLE ALLERGIES
     Dosage: 4 MG DAILY PO
     Route: 048
     Dates: start: 20060910, end: 20110606

REACTIONS (6)
  - ATTENTION DEFICIT/HYPERACTIVITY DISORDER [None]
  - MOVEMENT DISORDER [None]
  - EDUCATIONAL PROBLEM [None]
  - CONVULSION [None]
  - AGGRESSION [None]
  - ABNORMAL BEHAVIOUR [None]
